FAERS Safety Report 9875831 (Version 1)
Quarter: 2014Q1

REPORT INFORMATION
  Report Type: Report from Study
  Country: US (occurrence: US)
  Receive Date: 20140206
  Receipt Date: 20140206
  Transmission Date: 20141002
  Serious: Yes (Death)
  Sender: FDA-Public Use
  Company Number: US-ALEXION PHARMACEUTICALS INC.-A201400386

PATIENT
  Age: 2 Year
  Sex: 0

DRUGS (1)
  1. SOLIRIS [Suspect]
     Indication: OFF LABEL USE
     Dosage: UNK
     Route: 042

REACTIONS (2)
  - Death [Fatal]
  - Off label use [Unknown]
